FAERS Safety Report 18012752 (Version 1)
Quarter: 2020Q3

REPORT INFORMATION
  Report Type: Spontaneous
  Country: US (occurrence: US)
  Receive Date: 20200712
  Receipt Date: 20200712
  Transmission Date: 20201103
  Serious: No
  Sender: FDA-Public Use
  Company Number: None

PATIENT
  Age: 32 Year
  Sex: Female
  Weight: 63 kg

DRUGS (1)
  1. BLUMEN CLEAR ADVANCED HAND SANITIZER [Suspect]
     Active Substance: ALCOHOL
     Indication: COVID-19 PROPHYLAXIS
     Dosage: ?          OTHER STRENGTH:BOTTLE;QUANTITY:1 BOTTLE;?
     Route: 061
     Dates: start: 20200601, end: 20200709

REACTIONS (5)
  - Skin burning sensation [None]
  - Pain of skin [None]
  - Skin disorder [None]
  - Musculoskeletal stiffness [None]
  - Recalled product administered [None]

NARRATIVE: CASE EVENT DATE: 20200709
